FAERS Safety Report 25024027 (Version 3)
Quarter: 2025Q3

REPORT INFORMATION
  Report Type: Report from Study
  Country: CA (occurrence: CA)
  Receive Date: 20250228
  Receipt Date: 20250711
  Transmission Date: 20251020
  Serious: Yes (Other)
  Sender: TAKEDA
  Company Number: CA-TAKEDA-2025TUS019355

PATIENT
  Age: 60 Year
  Sex: Female

DRUGS (23)
  1. VEDOLIZUMAB [Suspect]
     Active Substance: VEDOLIZUMAB
     Indication: Crohn^s disease
  2. VEDOLIZUMAB [Suspect]
     Active Substance: VEDOLIZUMAB
  3. HUMIRA [Concomitant]
     Active Substance: ADALIMUMAB
  4. BUDESONIDE [Concomitant]
     Active Substance: BUDESONIDE
  5. ENTOCORT [Concomitant]
     Active Substance: BUDESONIDE
  6. Cortiment [Concomitant]
  7. AMITRIPTYLINE [Concomitant]
     Active Substance: AMITRIPTYLINE
  8. DILTIAZEM HYDROCHLORIDE [Concomitant]
     Active Substance: DILTIAZEM HYDROCHLORIDE
  9. TYLENOL [Concomitant]
     Active Substance: ACETAMINOPHEN
  10. BACLOFEN [Concomitant]
     Active Substance: BACLOFEN
  11. SYMBICORT [Concomitant]
     Active Substance: BUDESONIDE\FORMOTEROL FUMARATE DIHYDRATE
  12. EBASTINE [Concomitant]
     Active Substance: EBASTINE
  13. MOMETASONE [Concomitant]
     Active Substance: MOMETASONE
  14. PREMARIN [Concomitant]
     Active Substance: ESTROGENS, CONJUGATED
     Route: 061
  15. VITAMIN D [Concomitant]
     Active Substance: VITAMIN D NOS
  16. Auro cyclobenzaprine [Concomitant]
  17. MAGNESIUM GLYCINATE [Concomitant]
     Active Substance: MAGNESIUM GLYCINATE
  18. VENTOLIN [Concomitant]
     Active Substance: ALBUTEROL SULFATE
  19. CALCIUM [Concomitant]
     Active Substance: CALCIUM
  20. PREDNISONE [Concomitant]
     Active Substance: PREDNISONE
  21. SPIRIVA [Concomitant]
     Active Substance: TIOTROPIUM BROMIDE MONOHYDRATE
  22. MONTELUKAST [Concomitant]
     Active Substance: MONTELUKAST
  23. VITAMINS [Concomitant]
     Active Substance: VITAMINS

REACTIONS (7)
  - Pneumonia [Recovered/Resolved]
  - Jaw disorder [Recovered/Resolved]
  - Swelling face [Recovered/Resolved]
  - Diarrhoea [Unknown]
  - Abdominal pain [Unknown]
  - Constipation [Unknown]
  - Gastroenteritis [Recovered/Resolved]

NARRATIVE: CASE EVENT DATE: 20241227
